FAERS Safety Report 17224197 (Version 4)
Quarter: 2020Q1

REPORT INFORMATION
  Report Type: Spontaneous
  Country: CZ (occurrence: CZ)
  Receive Date: 20200102
  Receipt Date: 20200129
  Transmission Date: 20200409
  Serious: Yes (Hospitalization)
  Sender: FDA-Public Use
  Company Number: CZ-CELGENEUS-CZE-20191210970

PATIENT
  Age: 78 Year
  Sex: Female
  Weight: 74 kg

DRUGS (24)
  1. ALLOPURINOL. [Concomitant]
     Active Substance: ALLOPURINOL
     Dosage: 100 MILLIGRAM
     Route: 048
     Dates: start: 20180510
  2. AMOXICILLIN TRIHYDRATE [Concomitant]
     Active Substance: AMOXICILLIN
     Indication: URINARY TRACT INFECTION
     Dosage: 2 GRAM
     Route: 048
     Dates: start: 20191209, end: 20191216
  3. ALLOPURINOL. [Concomitant]
     Active Substance: ALLOPURINOL
     Dosage: 300 MILLIGRAM
     Route: 048
     Dates: start: 20180412, end: 20180423
  4. METFORMIN HYDROCHLORIDE. [Concomitant]
     Active Substance: METFORMIN HYDROCHLORIDE
     Indication: DIABETES MELLITUS
     Dosage: 1000 MILLIGRAM
     Route: 048
     Dates: start: 2012, end: 20180218
  5. METFORMIN HYDROCHLORIDE. [Concomitant]
     Active Substance: METFORMIN HYDROCHLORIDE
     Dosage: 1000 MILLIGRAM
     Route: 048
     Dates: start: 20180221
  6. METOCLOPRAMIDE HYDROCHLORIDE MONOHYDRATE [Concomitant]
     Active Substance: METOCLOPRAMIDE HYDROCHLORIDE
     Indication: PROPHYLAXIS OF NAUSEA AND VOMITING
     Route: 048
     Dates: start: 20190722, end: 20191223
  7. ARDEAELYTOSOL EL [Concomitant]
     Indication: PROPHYLAXIS
     Dosage: 1500 MILLILITER
     Route: 041
     Dates: start: 20180216, end: 20180219
  8. ARDEAELYTOSOL EL [Concomitant]
     Dosage: 500 MILLILITER
     Route: 041
     Dates: start: 20180316, end: 20180320
  9. ATORVASTATINUM [Concomitant]
     Indication: PROPHYLAXIS
     Dosage: 20 MILLIGRAM
     Route: 048
     Dates: start: 2013, end: 20180217
  10. COLECALCIFEROLUM [Concomitant]
     Dosage: 600 MILLIGRAM
     Route: 048
     Dates: start: 2017, end: 20180217
  11. ATORVASTATINUM [Concomitant]
     Dosage: 20 MILLIGRAM
     Route: 048
     Dates: start: 20180220
  12. ALPRAZOLAMUM [Concomitant]
     Indication: PROPHYLAXIS
     Dosage: .5 MILLIGRAM
     Route: 048
     Dates: start: 20180723
  13. ARDEAELYTOSOL EL [Concomitant]
     Dosage: 500 MILLILITER
     Route: 041
     Dates: start: 20180412, end: 20180415
  14. BACTRIM [Concomitant]
     Active Substance: SULFAMETHOXAZOLE\TRIMETHOPRIM
     Indication: PROPHYLAXIS OF NAUSEA AND VOMITING
     Dosage: 480 MILLIGRAM
     Route: 048
     Dates: start: 20180131, end: 20180525
  15. RAMIPRILUMI AMLODIPINUM [Concomitant]
     Indication: HYPERTENSION
     Dosage: 5 MILLIGRAM
     Route: 048
     Dates: start: 20181115
  16. BACTRIM [Concomitant]
     Active Substance: SULFAMETHOXAZOLE\TRIMETHOPRIM
     Indication: INFECTION PROPHYLAXIS
     Dosage: 480 MILLIGRAM
     Route: 048
     Dates: start: 20180603
  17. AZACITIDINE. [Suspect]
     Active Substance: AZACITIDINE
     Dosage: 75 MILLIGRAM/SQ. METER
     Route: 058
     Dates: start: 20200106
  18. COLECALCIFEROLUM [Concomitant]
     Indication: PROPHYLAXIS
     Dosage: 1 DROPS
     Route: 048
     Dates: start: 201712, end: 2017
  19. COLECALCIFEROLUM [Concomitant]
     Dosage: 600 MILLIGRAM
     Route: 048
     Dates: start: 20180220
  20. AZACITIDINE. [Suspect]
     Active Substance: AZACITIDINE
     Indication: ACUTE MYELOID LEUKAEMIA
     Dosage: 75 MILLIGRAM/SQ. METER
     Route: 058
     Dates: start: 20180215, end: 20191117
  21. ALLOPURINOL. [Concomitant]
     Active Substance: ALLOPURINOL
     Indication: PROPHYLAXIS
     Dosage: 300 MILLIGRAM
     Route: 048
     Dates: start: 20180214, end: 20180217
  22. NORMAL SALINE [Concomitant]
     Active Substance: SODIUM CHLORIDE
     Indication: PROPHYLAXIS
     Dosage: 3500 MILLILITER
     Route: 041
     Dates: start: 20180214, end: 20180218
  23. OMEPRAZOLUM [Concomitant]
     Indication: PROPHYLAXIS OF NAUSEA AND VOMITING
     Dosage: 20 MILLIGRAM
     Route: 048
     Dates: start: 201710
  24. FLAVONOIDORUM FRACTIO PURIFICATA MICRONISATA [Concomitant]
     Indication: PROPHYLAXIS
     Dosage: 500 MILLIGRAM
     Route: 048
     Dates: start: 20181211

REACTIONS (1)
  - Urinary tract infection [Recovered/Resolved]

NARRATIVE: CASE EVENT DATE: 20191223
